FAERS Safety Report 7267882-X (Version None)
Quarter: 2011Q1

REPORT INFORMATION
  Report Type: 
  Country: None (occurrence: None)
  Receive Date: 20110201
  Receipt Date: 20110130
  Transmission Date: 20110831
  Serious: Yes (Death, Hospitalization, Other)
  Sender: FDA-Public Use
  Company Number: CN-ROCHE-756075

PATIENT
  Sex: Male

DRUGS (3)
  1. SANDIMMUNE [Concomitant]
     Route: 048
     Dates: start: 20091101
  2. MYCOPHENOLATE MOFETIL [Suspect]
     Route: 048
     Dates: start: 20091101
  3. CORTICOSTEROIDS [Concomitant]
     Route: 048
     Dates: start: 20091101, end: 20091124

REACTIONS (4)
  - CARDIAC FAILURE [None]
  - RESPIRATORY FAILURE [None]
  - MENTAL DISORDER [None]
  - AZOTAEMIA [None]
